FAERS Safety Report 18350530 (Version 2)
Quarter: 2020Q4

REPORT INFORMATION
  Report Type: Spontaneous
  Country: US (occurrence: US)
  Receive Date: 20201006
  Receipt Date: 20201023
  Transmission Date: 20210114
  Serious: Yes (Death, Hospitalization, Other)
  Sender: FDA-Public Use
  Company Number: US-PRINSTON PHARMACEUTICAL INC.-2020PRN00339

PATIENT
  Age: 35 Year
  Sex: Female
  Weight: 63.49 kg

DRUGS (14)
  1. MEPROBAMATE. [Suspect]
     Active Substance: MEPROBAMATE
  2. ALPRAZOLAM. [Suspect]
     Active Substance: ALPRAZOLAM
  3. TOPIRAMATE. [Suspect]
     Active Substance: TOPIRAMATE
  4. OXYCODONE [Suspect]
     Active Substance: OXYCODONE
  5. HUMIRA [Concomitant]
     Active Substance: ADALIMUMAB
     Indication: FIBROMYALGIA
  6. PAROXETINE. [Suspect]
     Active Substance: PAROXETINE
     Route: 048
  7. ZOLPIDEM [Suspect]
     Active Substance: ZOLPIDEM TARTRATE
  8. ^ACETAMINIPHEN^ [Suspect]
     Active Substance: ACETAMINOPHEN
  9. ^SOME KIND OF SHOT^ [Suspect]
     Active Substance: UNSPECIFIED INGREDIENT
  10. CARISOPRODOL. [Suspect]
     Active Substance: CARISOPRODOL
  11. UNSPECIFIED STEROIDS [Suspect]
     Active Substance: UNSPECIFIED INGREDIENT
     Indication: PAIN
  12. METHOTREXATE. [Concomitant]
     Active Substance: METHOTREXATE
     Indication: FIBROMYALGIA
  13. HUMIRA [Concomitant]
     Active Substance: ADALIMUMAB
     Indication: ARTHRITIS
     Dosage: ^ML PEN^
  14. METHOTREXATE. [Concomitant]
     Active Substance: METHOTREXATE
     Indication: ARTHRITIS

REACTIONS (11)
  - Completed suicide [Fatal]
  - Shock [Recovered/Resolved]
  - Pain [Not Recovered/Not Resolved]
  - Anxiety [Not Recovered/Not Resolved]
  - Unevaluable event [Unknown]
  - Toxicity to various agents [Fatal]
  - Suicide attempt [Recovered/Resolved]
  - Depression [Not Recovered/Not Resolved]
  - Dehydration [Unknown]
  - Rheumatoid arthritis [Not Recovered/Not Resolved]
  - Fibromyalgia [Not Recovered/Not Resolved]

NARRATIVE: CASE EVENT DATE: 2004
